FAERS Safety Report 8586885-6 (Version None)
Quarter: 2012Q3

REPORT INFORMATION
  Report Type: 
  Country: None (occurrence: None)
  Receive Date: 20120810
  Receipt Date: 20120807
  Transmission Date: 20120928
  Serious: Yes (Other)
  Sender: FDA-Public Use
  Company Number: ES-ELI_LILLY_AND_COMPANY-ES201208002101

PATIENT
  Sex: Female

DRUGS (1)
  1. FORTEO [Suspect]
     Dosage: UNK UNK, UNKNOWN
     Route: 065
     Dates: start: 20120620

REACTIONS (7)
  - INFLAMMATION [None]
  - HAEMATOMA [None]
  - LOSS OF CONSCIOUSNESS [None]
  - INJURY [None]
  - LIMB INJURY [None]
  - HEAD INJURY [None]
  - FALL [None]
